FAERS Safety Report 23765661 (Version 1)
Quarter: 2024Q2

REPORT INFORMATION
  Report Type: Report from Study
  Country: US (occurrence: None)
  Receive Date: 20240421
  Receipt Date: 20240421
  Transmission Date: 20240716
  Serious: Yes (Hospitalization, Other)
  Sender: FDA-Public Use
  Company Number: 2024A087915

PATIENT
  Sex: Male

DRUGS (2)
  1. CALQUENCE [Suspect]
     Active Substance: ACALABRUTINIB
     Indication: Chronic lymphocytic leukaemia
     Route: 048
     Dates: start: 20240314
  2. LASIX [Concomitant]
     Active Substance: FUROSEMIDE

REACTIONS (3)
  - Full blood count abnormal [Unknown]
  - Arthropathy [Unknown]
  - Atrial fibrillation [Unknown]
